FAERS Safety Report 5270766-X (Version None)
Quarter: 2007Q1

REPORT INFORMATION
  Report Type: 
  Country: None (occurrence: None)
  Receive Date: 20070315
  Receipt Date: 20070312
  Transmission Date: 20070707
  Serious: Yes (Death)
  Sender: FDA-Public Use
  Company Number: E2020-00762-SPO-GB

PATIENT
  Age: 75 Year
  Sex: Male

DRUGS (5)
  1. ARICEPT [Suspect]
     Indication: CEREBRAL ATROPHY
     Dosage: 500 MG, 50 IN 1 D, ORAL
     Route: 048
  2. ARICEPT [Suspect]
     Indication: DEMENTIA
     Dosage: 500 MG, 50 IN 1 D, ORAL
     Route: 048
  3. QUETIAPINE FUMARATE [Concomitant]
  4. QUININE SULFATE [Concomitant]
  5. INSULIN (INSULIN) [Concomitant]

REACTIONS (4)
  - BLOOD PRESSURE DECREASED [None]
  - BRADYCARDIA [None]
  - COMPLETED SUICIDE [None]
  - OVERDOSE [None]
